FAERS Safety Report 9985646 (Version 2)
Quarter: 2014Q2

REPORT INFORMATION
  Report Type: Report from Study
  Country: DE (occurrence: DE)
  Receive Date: 20140307
  Receipt Date: 20140405
  Transmission Date: 20141212
  Serious: Yes (Hospitalization, Other)
  Sender: FDA-Public Use
  Company Number: DE-TEVA-465776GER

PATIENT
  Age: 67 Year
  Sex: Female
  Weight: 83 kg

DRUGS (4)
  1. GEMCITABIN-GRY 1000 MG [Suspect]
     Indication: BREAST CANCER FEMALE
     Route: 042
     Dates: start: 20140109, end: 20140224
  2. GEMCITABIN-GRY 1000 MG [Suspect]
     Route: 042
     Dates: start: 20140313
  3. ABRAXANE [Suspect]
     Indication: BREAST CANCER FEMALE
     Route: 042
     Dates: start: 20140109, end: 20140224
  4. ABRAXANE [Suspect]
     Route: 042
     Dates: start: 20140313

REACTIONS (3)
  - Type 3 diabetes mellitus [Unknown]
  - Hepatic enzyme increased [Recovering/Resolving]
  - Dizziness [Recovered/Resolved]
